FAERS Safety Report 9358355 (Version 6)
Quarter: 2013Q4

REPORT INFORMATION
  Report Type: Spontaneous
  Country: US (occurrence: US)
  Receive Date: 20130620
  Receipt Date: 20131119
  Transmission Date: 20140711
  Serious: Yes (Hospitalization)
  Sender: FDA-Public Use
  Company Number: US-ACTELION-A-NJ2013-84646

PATIENT
  Age: 68 Year
  Sex: Female

DRUGS (4)
  1. TRACLEER [Suspect]
     Indication: PULMONARY ARTERIAL HYPERTENSION
     Dosage: 125 MG, BID
     Route: 048
  2. TRACLEER [Suspect]
     Dosage: 62.5 MG, BID
     Route: 048
  3. FLOLAN [Concomitant]
  4. COUMADIN [Concomitant]

REACTIONS (6)
  - Aortic stenosis [Not Recovered/Not Resolved]
  - Cardiac operation [Recovering/Resolving]
  - Acute myocardial infarction [Recovering/Resolving]
  - Troponin increased [Recovering/Resolving]
  - Electrocardiogram ST segment depression [Recovering/Resolving]
  - Dyspnoea [Not Recovered/Not Resolved]
